FAERS Safety Report 23137610 (Version 1)
Quarter: 2023Q4

REPORT INFORMATION
  Report Type: Spontaneous
  Country: IN (occurrence: IN)
  Receive Date: 20231102
  Receipt Date: 20231102
  Transmission Date: 20240110
  Serious: No
  Sender: FDA-Public Use
  Company Number: IN-LUPIN LIMITED-2023-09019

PATIENT
  Age: 52 Year
  Sex: Male
  Weight: 60 kg

DRUGS (2)
  1. HERBALS [Suspect]
     Active Substance: HERBALS
     Indication: Product used for unknown indication
     Dosage: UNK
     Route: 065
     Dates: start: 2023, end: 2023
  2. Dapavel [Concomitant]
     Indication: Blood glucose increased
     Dosage: UNK
     Route: 065

REACTIONS (1)
  - Blood glucose increased [Recovering/Resolving]
